FAERS Safety Report 18661493 (Version 1)
Quarter: 2020Q4

REPORT INFORMATION
  Report Type: Spontaneous
  Country: US (occurrence: US)
  Receive Date: 20201224
  Receipt Date: 20201224
  Transmission Date: 20210114
  Serious: Yes (Other)
  Sender: FDA-Public Use
  Company Number: US-PFIZER INC-2020500541

PATIENT
  Age: 61 Year
  Sex: Female

DRUGS (1)
  1. NICOTROL [Suspect]
     Active Substance: NICOTINE
     Dosage: UNK (10MG (4MG DELIVERED))

REACTIONS (4)
  - Incorrect route of product administration [Unknown]
  - Intentional device use issue [Unknown]
  - Lower limb fracture [Unknown]
  - Device difficult to use [Unknown]
